FAERS Safety Report 18047157 (Version 1)
Quarter: 2020Q3

REPORT INFORMATION
  Report Type: Spontaneous
  Country: US (occurrence: US)
  Receive Date: 20200721
  Receipt Date: 20200721
  Transmission Date: 20201103
  Serious: Yes (Other)
  Sender: FDA-Public Use
  Company Number: US-ALKEM LABORATORIES LIMITED-US-ALKEM-2020-01083

PATIENT
  Sex: Female

DRUGS (1)
  1. TRIAMCINOLONE ACETONIDE. [Suspect]
     Active Substance: TRIAMCINOLONE ACETONIDE
     Indication: DERMATITIS
     Dosage: 4?5 TIMES DAILY FOR 3 MONTHS
     Route: 061

REACTIONS (3)
  - Medication error [Unknown]
  - Cushing^s syndrome [Recovered/Resolved]
  - Oral candidiasis [Recovered/Resolved]
